FAERS Safety Report 4417075-6 (Version None)
Quarter: 2004Q2

REPORT INFORMATION
  Report Type: 
  Country: None (occurrence: None)
  Receive Date: 20040629
  Receipt Date: 20031111
  Transmission Date: 20050107
  Serious: Yes (Other)
  Sender: FDA-Public Use
  Company Number: QUU041518

PATIENT
  Age: 66 Year
  Sex: Male
  Weight: 79.5 kg

DRUGS (5)
  1. ARANESP [Suspect]
     Indication: RENAL FAILURE CHRONIC
     Dosage: 60 MCG, EVERY 2 WEEKS, SC
     Route: 058
     Dates: start: 20020710, end: 20021204
  2. SODIUM POLYSTYRENE SULFONATE [Concomitant]
  3. AMLODIPINE BESYLATE [Concomitant]
  4. ACETYLSALICYLIC ACID [Concomitant]
  5. INSULIN [Concomitant]

REACTIONS (1)
  - DIARRHOEA [None]
